FAERS Safety Report 12331285 (Version 3)
Quarter: 2017Q1

REPORT INFORMATION
  Report Type: Other
  Country: JP (occurrence: JP)
  Receive Date: 20160504
  Receipt Date: 20170201
  Transmission Date: 20170428
  Serious: Yes (Other)
  Sender: FDA-Public Use
  Company Number: JP-EMD SERONO-8080405

PATIENT
  Age: 35 Year
  Sex: Female

DRUGS (4)
  1. GONAL-F [Suspect]
     Active Substance: FOLLITROPIN
     Indication: OVULATION INDUCTION
     Route: 058
  2. CLOMID [Concomitant]
     Active Substance: CLOMIPHENE CITRATE
     Indication: OVULATION INDUCTION
     Route: 048
  3. CABASER [Concomitant]
     Active Substance: CABERGOLINE
     Indication: OVULATION INDUCTION
     Route: 048
  4. METFORMIN [Concomitant]
     Active Substance: METFORMIN HYDROCHLORIDE
     Indication: OVULATION INDUCTION
     Route: 048

REACTIONS (1)
  - Abortion early [Recovered/Resolved]
